FAERS Safety Report 20049124 (Version 1)
Quarter: 2021Q4

REPORT INFORMATION
  Report Type: Spontaneous
  Country: US (occurrence: US)
  Receive Date: 20211109
  Receipt Date: 20211109
  Transmission Date: 20220304
  Serious: No
  Sender: FDA-Public Use
  Company Number: US-ALXN-A202112072

PATIENT
  Sex: Male
  Weight: 40.363 kg

DRUGS (10)
  1. KANUMA [Suspect]
     Active Substance: SEBELIPASE ALFA
     Indication: Lipid metabolism disorder
     Dosage: 40 MG, Q2W
     Route: 042
     Dates: start: 20180723
  2. KANUMA [Suspect]
     Active Substance: SEBELIPASE ALFA
     Indication: Off label use
  3. DIPHENHYDRAMINE [Concomitant]
     Active Substance: DIPHENHYDRAMINE
     Indication: Product used for unknown indication
     Route: 065
  4. EPINEPHRINE                        /00003902/ [Concomitant]
     Indication: Product used for unknown indication
     Route: 065
  5. SODIUM CHLORIDE [Concomitant]
     Active Substance: SODIUM CHLORIDE
     Indication: Product used for unknown indication
     Route: 065
  6. LIDOCAINE PRILOCAINE BIOGARAN [Concomitant]
     Indication: Product used for unknown indication
     Route: 065
  7. ACETAMINOPHEN [Concomitant]
     Active Substance: ACETAMINOPHEN
     Indication: Product used for unknown indication
     Route: 065
  8. TRIAMCINOLONE                      /00031902/ [Concomitant]
     Indication: Product used for unknown indication
     Route: 065
  9. SODIUM CHLORIDE [Concomitant]
     Active Substance: SODIUM CHLORIDE
     Indication: Product used for unknown indication
     Route: 065
  10. HEPARIN [Concomitant]
     Active Substance: HEPARIN SODIUM
     Indication: Product used for unknown indication
     Route: 065

REACTIONS (2)
  - Vomiting [Unknown]
  - Abdominal discomfort [Unknown]
